FAERS Safety Report 5782334-1 (Version None)
Quarter: 2008Q2

REPORT INFORMATION
  Report Type: 
  Country: None (occurrence: None)
  Receive Date: 20080623
  Receipt Date: 20080613
  Transmission Date: 20081010
  Serious: Yes (Hospitalization)
  Sender: FDA-Public Use
  Company Number: DE-WYE-G01683308

PATIENT
  Age: 30 Year
  Sex: Male

DRUGS (13)
  1. VENLAFAXINE HCL [Suspect]
     Route: 048
     Dates: start: 20080201, end: 20080220
  2. VENLAFAXINE HCL [Suspect]
     Route: 048
     Dates: start: 20080221, end: 20080222
  3. VENLAFAXINE HCL [Suspect]
     Route: 048
     Dates: start: 20080223, end: 20080303
  4. TEGRETOL [Concomitant]
     Route: 048
     Dates: start: 20080222, end: 20080223
  5. TEGRETOL [Concomitant]
     Route: 048
     Dates: start: 20080224, end: 20080224
  6. LORAZEPAM [Suspect]
     Route: 048
     Dates: start: 20080119, end: 20080219
  7. LORAZEPAM [Suspect]
     Route: 048
     Dates: start: 20080220, end: 20080221
  8. LEVOTHYROXINE SODIUM [Concomitant]
     Indication: HYPOTHYROIDISM
     Route: 048
     Dates: start: 20080223, end: 20080310
  9. LEVOTHYROXINE SODIUM [Concomitant]
     Route: 048
     Dates: start: 20080311
  10. PERAZINE [Suspect]
     Route: 048
     Dates: end: 20080219
  11. PERAZINE [Suspect]
     Dosage: TAPERED FROM 250 MG PER DAY
     Route: 048
     Dates: start: 20080220, end: 20080224
  12. LITHIOFOR [Concomitant]
     Route: 048
  13. TIMONIL [Concomitant]
     Route: 048
     Dates: start: 20080225

REACTIONS (5)
  - ANXIETY [None]
  - CONDITION AGGRAVATED [None]
  - DRUG WITHDRAWAL SYNDROME [None]
  - OBSESSIVE THOUGHTS [None]
  - SUICIDAL IDEATION [None]
